FAERS Safety Report 25541951 (Version 4)
Quarter: 2025Q4

REPORT INFORMATION
  Report Type: Spontaneous
  Country: AR (occurrence: AR)
  Receive Date: 20250711
  Receipt Date: 20251209
  Transmission Date: 20260118
  Serious: Yes (Hospitalization)
  Sender: ROCHE
  Company Number: AR-002147023-NVSC2025AR107692

PATIENT
  Age: 86 Year
  Sex: Male

DRUGS (1)
  1. XOLAIR [Suspect]
     Active Substance: OMALIZUMAB
     Indication: Asthma
     Dosage: 450 MILLIGRAM PER MILLILITRE, Q4W (4 WEEKS)
     Route: 058
     Dates: start: 2022

REACTIONS (7)
  - Chronic obstructive pulmonary disease [Recovered/Resolved]
  - Cough [Recovered/Resolved]
  - Limb injury [Recovering/Resolving]
  - Fall [Unknown]
  - Skin disorder [Unknown]
  - Wound complication [Recovered/Resolved]
  - Wound infection [Unknown]

NARRATIVE: CASE EVENT DATE: 20250601
